FAERS Safety Report 10683706 (Version 2)
Quarter: 2015Q1

REPORT INFORMATION
  Report Type: Spontaneous
  Country: IT (occurrence: IT)
  Receive Date: 20141230
  Receipt Date: 20150217
  Transmission Date: 20150720
  Serious: Yes (Hospitalization)
  Sender: FDA-Public Use
  Company Number: IT-FRI-1000073326

PATIENT
  Age: 24 Year
  Sex: Female

DRUGS (4)
  1. MONUROL [Suspect]
     Active Substance: FOSFOMYCIN TROMETHAMINE
     Indication: CULTURE URINE POSITIVE
  2. BACTRIM [Suspect]
     Active Substance: SULFAMETHOXAZOLE\TRIMETHOPRIM
     Indication: URINARY TRACT INFECTION
     Dosage: 1 DOSAGE FORM  (160 / 800 MG)
     Route: 048
     Dates: start: 20140115, end: 20140117
  3. MONUROL [Suspect]
     Active Substance: FOSFOMYCIN TROMETHAMINE
     Indication: URINARY TRACT INFECTION
     Dosage: 1 DOSAGE FORM
     Route: 065
     Dates: start: 20140115, end: 20140117
  4. BACTRIM [Suspect]
     Active Substance: SULFAMETHOXAZOLE\TRIMETHOPRIM
     Indication: CULTURE URINE POSITIVE

REACTIONS (6)
  - Oropharyngeal pain [Unknown]
  - Off label use [Unknown]
  - Pruritus [Unknown]
  - Rash [Unknown]
  - Toxic skin eruption [Unknown]
  - Hyperpyrexia [Unknown]

NARRATIVE: CASE EVENT DATE: 20140115
